FAERS Safety Report 8107533 (Version 3)
Quarter: 2013Q3

REPORT INFORMATION
  Report Type: Spontaneous
  Country: US (occurrence: US)
  Receive Date: 20110825
  Receipt Date: 20130920
  Transmission Date: 20140515
  Serious: Yes (Hospitalization, Other)
  Sender: FDA-Public Use
  Company Number: US-ASTRAZENECA-2009SE24026

PATIENT
  Age: 49 Year
  Sex: Female
  Weight: 72.6 kg

DRUGS (9)
  1. SEROQUEL [Suspect]
     Indication: SCHIZOAFFECTIVE DISORDER
     Route: 048
     Dates: start: 1997
  2. SEROQUEL [Suspect]
     Indication: SLEEP DISORDER
     Route: 048
     Dates: start: 1997
  3. SEROQUEL [Suspect]
     Indication: SCHIZOAFFECTIVE DISORDER
     Route: 048
     Dates: start: 2008
  4. SEROQUEL [Suspect]
     Indication: SLEEP DISORDER
     Route: 048
     Dates: start: 2008
  5. SEROQUEL [Suspect]
     Indication: SCHIZOAFFECTIVE DISORDER
     Route: 048
  6. SEROQUEL [Suspect]
     Indication: SLEEP DISORDER
     Route: 048
  7. SEROQUEL [Suspect]
     Indication: SCHIZOAFFECTIVE DISORDER
     Route: 048
  8. SEROQUEL [Suspect]
     Indication: SLEEP DISORDER
     Route: 048
  9. CLONAZEPAM [Concomitant]

REACTIONS (15)
  - Visual impairment [Unknown]
  - Retinal disorder [Unknown]
  - Activities of daily living impaired [Unknown]
  - Neck pain [Unknown]
  - Muscle tightness [Unknown]
  - Therapeutic response unexpected [Unknown]
  - Restless legs syndrome [Unknown]
  - Dysphagia [Unknown]
  - Palpitations [Unknown]
  - Tremor [Unknown]
  - Weight increased [Unknown]
  - Dyspnoea [None]
  - Drug dose omission [Unknown]
  - Intentional drug misuse [Unknown]
  - Intentional drug misuse [Unknown]
